FAERS Safety Report 4667003-3 (Version None)
Quarter: 2005Q2

REPORT INFORMATION
  Report Type: 
  Country: None (occurrence: None)
  Receive Date: 20050520
  Receipt Date: 20040628
  Transmission Date: 20051028
  Serious: Yes (Hospitalization)
  Sender: FDA-Public Use
  Company Number: PHEH2004US07022

PATIENT
  Age: 70 Year
  Sex: Male

DRUGS (1)
  1. AREDIA [Suspect]
     Dosage: 80 MG, ^Q4^
     Dates: start: 19981101

REACTIONS (4)
  - JAW DISORDER [None]
  - MULTIPLE MYELOMA [None]
  - OSTEONECROSIS [None]
  - PAIN IN JAW [None]
